FAERS Safety Report 13937220 (Version 6)
Quarter: 2017Q4

REPORT INFORMATION
  Report Type: Spontaneous
  Country: BR (occurrence: BR)
  Receive Date: 20170905
  Receipt Date: 20171026
  Transmission Date: 20180320
  Serious: Yes (Death, Hospitalization)
  Sender: FDA-Public Use
  Company Number: BR-SA-2017SA162848

PATIENT
  Age: 33 Year
  Sex: Female
  Weight: 52 kg

DRUGS (8)
  1. FUROSEMIDE. [Concomitant]
     Active Substance: FUROSEMIDE
     Route: 065
  2. AAS [Concomitant]
     Active Substance: ASPIRIN
     Route: 065
  3. APRESOLINE HYDROCHLORIDE [Concomitant]
     Active Substance: HYDRALAZINE HYDROCHLORIDE
     Route: 065
  4. AMLODIPINE [Concomitant]
     Active Substance: AMLODIPINE BESYLATE
     Route: 065
  5. THYMOGLOBULINE [Suspect]
     Active Substance: LAPINE T-LYMPHOCYTE IMMUNE GLOBULIN
     Indication: RENAL TRANSPLANT
     Dosage: 6 VIALS
     Route: 065
     Dates: start: 20170818
  6. KEFAZOL [Concomitant]
     Active Substance: CEFAZOLIN SODIUM
     Route: 065
     Dates: start: 20170818
  7. THYMOGLOBULINE [Suspect]
     Active Substance: LAPINE T-LYMPHOCYTE IMMUNE GLOBULIN
     Indication: RENAL TRANSPLANT
     Route: 065
  8. REUQUINOL [Concomitant]
     Active Substance: HYDROXYCHLOROQUINE SULFATE
     Route: 065

REACTIONS (18)
  - Hepatic failure [Fatal]
  - Hypothermia [Fatal]
  - Hospitalisation [Unknown]
  - Blood pressure abnormal [Fatal]
  - Acidosis [Fatal]
  - Shock [Fatal]
  - Coagulopathy [Fatal]
  - Hypoglycaemia [Fatal]
  - Hypotension [Fatal]
  - Tachycardia [Fatal]
  - Sinus tachycardia [Fatal]
  - Miosis [Fatal]
  - Anuria [Fatal]
  - Hypoglycaemia [Fatal]
  - Hepatic enzyme increased [Fatal]
  - Septic shock [Fatal]
  - Sepsis [Fatal]
  - Cardio-respiratory arrest [Fatal]

NARRATIVE: CASE EVENT DATE: 20170818
